FAERS Safety Report 7844865-X (Version None)
Quarter: 2011Q4

REPORT INFORMATION
  Report Type: 
  Country: None (occurrence: None)
  Receive Date: 20111025
  Receipt Date: 20111017
  Transmission Date: 20120403
  Serious: Yes (Other)
  Sender: FDA-Public Use
  Company Number: JP-GLAXOSMITHKLINE-B0757147A

PATIENT
  Age: 41 Year

DRUGS (4)
  1. ETRETINATE [Concomitant]
     Indication: PSORIATIC ARTHROPATHY
     Route: 048
  2. CYCLOSPORINE [Concomitant]
     Indication: PSORIATIC ARTHROPATHY
     Route: 048
  3. INFLIXIMAB [Concomitant]
     Indication: PSORIATIC ARTHROPATHY
     Route: 042
  4. CLOBETASOL PROPIONATE [Suspect]
     Indication: PSORIATIC ARTHROPATHY
     Route: 061

REACTIONS (6)
  - SECONDARY ADRENOCORTICAL INSUFFICIENCY [None]
  - COLITIS [None]
  - DECREASED APPETITE [None]
  - VOMITING [None]
  - BLOOD CORTISOL DECREASED [None]
  - DIARRHOEA [None]
